FAERS Safety Report 19126373 (Version 1)
Quarter: 2021Q2

REPORT INFORMATION
  Report Type: Spontaneous
  Country: US (occurrence: US)
  Receive Date: 20210412
  Receipt Date: 20210412
  Transmission Date: 20210717
  Serious: No
  Sender: FDA-Public Use
  Company Number: None

PATIENT
  Age: 61 Year
  Sex: Female

DRUGS (2)
  1. ANASTROZOLE. [Concomitant]
     Active Substance: ANASTROZOLE
  2. VERZENIO [Suspect]
     Active Substance: ABEMACICLIB
     Indication: BREAST CANCER
     Dosage: 150MG 1 TABLET BID BY MOUTH
     Route: 048
     Dates: start: 20210330

REACTIONS (3)
  - Rash [None]
  - Fatigue [None]
  - Dyspnoea exertional [None]

NARRATIVE: CASE EVENT DATE: 20210402
